FAERS Safety Report 8766479 (Version 2)
Quarter: 2012Q4

REPORT INFORMATION
  Report Type: 
  Country: JP (occurrence: JP)
  Receive Date: 20120904
  Receipt Date: 20120907
  Transmission Date: 20130627
  Serious: Yes (Other)
  Sender: FDA-Public Use
  Company Number: JP-ROCHE-1109195

PATIENT
  Age: 59 Year
  Sex: Female

DRUGS (1)
  1. ROCEPHIN [Suspect]
     Indication: MENINGITIS BACTERIAL
     Dosage: Dosage is uncertain.
     Route: 042

REACTIONS (5)
  - Cerebral infarction [Unknown]
  - Drug-induced liver injury [Recovering/Resolving]
  - Pseudomembranous colitis [Recovering/Resolving]
  - Platelet count decreased [Unknown]
  - Aortic valve incompetence [Unknown]
